FAERS Safety Report 6464030-0 (Version None)
Quarter: 2009Q4

REPORT INFORMATION
  Report Type: 
  Country: None (occurrence: None)
  Receive Date: 20091201
  Receipt Date: 20091118
  Transmission Date: 20100525
  Serious: No
  Sender: FDA-Public Use
  Company Number: US-ROXANE LABORATORIES, INC.-2009-RO-01198RO

PATIENT
  Sex: Male

DRUGS (3)
  1. METHOTREXATE [Suspect]
     Indication: PSORIASIS
     Route: 048
  2. METHOTREXATE [Suspect]
     Indication: ARTHRITIS
  3. ENBREL [Concomitant]

REACTIONS (1)
  - TONGUE DISORDER [None]
